FAERS Safety Report 7167905-2 (Version None)
Quarter: 2010Q4

REPORT INFORMATION
  Report Type: 
  Country: None (occurrence: None)
  Receive Date: 20101216
  Receipt Date: 20101207
  Transmission Date: 20110411
  Serious: No
  Sender: FDA-Public Use
  Company Number: US-PFIZER INC-2010167171

PATIENT
  Sex: Female
  Weight: 65 kg

DRUGS (11)
  1. ADRIAMYCIN PFS [Suspect]
     Indication: BREAST CANCER
     Dosage: 88 MG, EVERY CYCLE
     Route: 042
     Dates: start: 20100624, end: 20100624
  2. ADRIAMYCIN PFS [Suspect]
     Dosage: 88 MG, EVERY CYCLE
     Route: 042
     Dates: start: 20100805, end: 20100805
  3. ADRIAMYCIN PFS [Suspect]
     Dosage: 88 MG, EVERY CYCLE
     Route: 042
     Dates: start: 20101014, end: 20101014
  4. TAXOTERE [Suspect]
     Indication: BREAST CANCER
     Dosage: 130 MG, EVERY CYCLE
     Route: 041
     Dates: start: 20100624, end: 20100624
  5. TAXOTERE [Suspect]
     Dosage: 130 MG, EVERY CYCLE
     Route: 041
     Dates: start: 20100805, end: 20100805
  6. CYTOXAN [Suspect]
     Indication: BREAST CANCER
     Dosage: 875 MG, EVERY THREE WEEKS
     Route: 042
     Dates: start: 20100624, end: 20100624
  7. CYTOXAN [Suspect]
     Dosage: 875 MG, EVERY THREE WEEKS
     Route: 042
     Dates: start: 20100805, end: 20100805
  8. CYTOXAN [Suspect]
     Dosage: 875 MG, EVERY THREE WEEKS
     Route: 042
     Dates: start: 20101014, end: 20101014
  9. SUMATRIPTAN [Concomitant]
     Dosage: UNK
  10. SERZONE [Concomitant]
     Dosage: UNK
  11. AMITRIPTYLINE [Concomitant]
     Dosage: UNK

REACTIONS (1)
  - DIARRHOEA [None]
